FAERS Safety Report 9803306 (Version 1)
Quarter: 2014Q1

REPORT INFORMATION
  Report Type: Report from Study
  Country: AR (occurrence: AR)
  Receive Date: 20140108
  Receipt Date: 20140108
  Transmission Date: 20141002
  Serious: Yes (Hospitalization, Other)
  Sender: FDA-Public Use
  Company Number: PHHY2014AR001448

PATIENT
  Age: 85 Year
  Sex: Female

DRUGS (1)
  1. DIOVAN [Suspect]
     Indication: HYPERTENSION
     Dosage: 1 TABLET (80 MG), DAILY
     Route: 048
     Dates: start: 201311

REACTIONS (5)
  - Cerebrovascular accident [Recovering/Resolving]
  - Hemiplegia [Unknown]
  - Dysphagia [Unknown]
  - Pneumonia [Recovered/Resolved]
  - Dehydration [Recovered/Resolved]
